FAERS Safety Report 5332431-X (Version None)
Quarter: 2007Q2

REPORT INFORMATION
  Report Type: 
  Country: None (occurrence: None)
  Receive Date: 20070306
  Receipt Date: 20060419
  Transmission Date: 20071010
  Serious: Yes (Other)
  Sender: FDA-Public Use
  Company Number: A03200602459

PATIENT
  Age: 55 Year
  Sex: Male

DRUGS (6)
  1. PLAVIX [Suspect]
     Indication: STENT PLACEMENT
     Dosage: 75 MG QD - ORAL
     Route: 048
     Dates: start: 20051101
  2. AVANDIA [Suspect]
     Indication: DIABETES MELLITUS NON-INSULIN-DEPENDENT
     Dosage: 8 MG QD - ORAL
     Route: 048
     Dates: start: 20030101
  3. ATENOLOL [Concomitant]
  4. RAMIPRIL [Concomitant]
  5. ALLOPURINOL [Concomitant]
  6. ACETYLSALICYLIC ACID SRT [Concomitant]

REACTIONS (2)
  - ANAEMIA [None]
  - GASTROINTESTINAL HAEMORRHAGE [None]
